FAERS Safety Report 7650823-0 (Version None)
Quarter: 2011Q3

REPORT INFORMATION
  Report Type: 
  Country: None (occurrence: None)
  Receive Date: 20110802
  Receipt Date: 20110725
  Transmission Date: 20111222
  Serious: Yes (Other)
  Sender: FDA-Public Use
  Company Number: US-BAYER-2011-003442

PATIENT
  Age: 28 Year
  Sex: Female
  Weight: 79.365 kg

DRUGS (16)
  1. ZEGERID [Concomitant]
     Dosage: 40 MG, QD
     Dates: start: 20090115, end: 20090615
  2. CLARITIN-D 24 HOUR [Concomitant]
     Dosage: UNK UNK, QD
     Dates: start: 20090304
  3. ZOFRAN [Concomitant]
     Dosage: UNK
     Dates: start: 20081230
  4. APAP TAB [Concomitant]
     Dosage: UNK UNK, PRN
     Dates: start: 20090105
  5. MUCINEX DM [Concomitant]
     Dosage: UNK
     Dates: start: 20090304
  6. YAZ [Suspect]
     Indication: PREMENSTRUAL SYNDROME
  7. YAZ [Suspect]
  8. MAXIFED-G [Concomitant]
     Dosage: UNK
     Dates: start: 20081107
  9. DILAUDID [Concomitant]
     Dosage: UNK
     Dates: start: 20081230
  10. PROMETHAZINE [Concomitant]
     Indication: NAUSEA
     Dosage: 25 MG, UNK
     Dates: start: 20090102
  11. ZOLOFT [Concomitant]
     Indication: MOOD ALTERED
     Dosage: UNK
     Dates: start: 20040101
  12. YAZ [Suspect]
     Indication: CONTRACEPTION
     Dosage: UNK
     Route: 048
     Dates: start: 20070901, end: 20090901
  13. PREVPAC [Concomitant]
     Dosage: UNK
     Dates: start: 20081010
  14. NEXIUM [Concomitant]
     Dosage: UNK
     Dates: start: 20081231
  15. HYDROCODONE BITARTRATE AND ACETAMINOPHEN [Concomitant]
     Indication: PAIN
     Dosage: UNK
     Dates: start: 20090102
  16. PREVACID [Concomitant]
     Dosage: 30 MG, QD
     Dates: start: 20090105

REACTIONS (6)
  - PAIN [None]
  - NAUSEA [None]
  - CHOLECYSTITIS CHRONIC [None]
  - CHOLECYSTECTOMY [None]
  - GALLBLADDER CHOLESTEROLOSIS [None]
  - BILIARY DYSKINESIA [None]
